FAERS Safety Report 10949296 (Version 1)
Quarter: 2015Q1

REPORT INFORMATION
  Report Type: Spontaneous
  Country: US (occurrence: None)
  Receive Date: 20150323
  Receipt Date: 20150323
  Transmission Date: 20150721
  Serious: No
  Sender: FDA-Public Use
  Company Number: None

PATIENT
  Age: 51 Year

DRUGS (12)
  1. TIZANDINE (TIZANDINE HYDROCHLORIDE) [Concomitant]
     Active Substance: TIZANIDINE HYDROCHLORIDE
  2. LUNESTA [Concomitant]
     Active Substance: ESZOPICLONE
  3. VITAMIN B12 [Concomitant]
     Active Substance: CYANOCOBALAMIN
  4. LISINOPRIL. [Concomitant]
     Active Substance: LISINOPRIL
  5. ACETAMINOPHEN. [Concomitant]
     Active Substance: ACETAMINOPHEN
  6. MUCINEX [Suspect]
     Active Substance: GUAIFENESIN
     Indication: RHINITIS ALLERGIC
     Route: 048
     Dates: start: 20150203, end: 20150226
  7. DIPHENHYDRAMINE [Concomitant]
     Active Substance: DIPHENHYDRAMINE
  8. LEXAPRO [Suspect]
     Active Substance: ESCITALOPRAM OXALATE
     Route: 048
     Dates: start: 20150203, end: 20150226
  9. CALCIUM [Concomitant]
     Active Substance: CALCIUM
  10. OMEGA 3 [Concomitant]
     Active Substance: OMEGA-3 FATTY ACIDS
  11. PESUDOEPHEDRINE [Concomitant]
  12. FLONASE [Concomitant]
     Active Substance: FLUTICASONE PROPIONATE

REACTIONS (2)
  - Drug interaction [None]
  - Hyperhidrosis [None]

NARRATIVE: CASE EVENT DATE: 20150211
